FAERS Safety Report 4855428-2 (Version None)
Quarter: 2005Q4

REPORT INFORMATION
  Report Type: 
  Country: None (occurrence: None)
  Receive Date: 20051125
  Receipt Date: 20050516
  Transmission Date: 20060501
  Serious: Yes (Disabling, Other)
  Sender: FDA-Public Use
  Company Number: US-JNJFOC-20050205871

PATIENT
  Age: 79 Year
  Sex: Male
  Weight: 83.9154 kg

DRUGS (5)
  1. LEVAQUIN [Suspect]
     Indication: RESPIRATORY DISORDER
     Dosage: 500 MG, 1 IN 1 DAY
     Dates: start: 20050103, end: 20050112
  2. FOLIC ACID [Concomitant]
  3. OCCUVITE (OCUVITE) [Concomitant]
  4. ZYRTEC [Concomitant]
  5. DUBRAMIL (ALL OTHER THERAPEUTIC PRODUCTS) [Concomitant]

REACTIONS (2)
  - TENDON RUPTURE [None]
  - TENDONITIS [None]
